FAERS Safety Report 9113740 (Version 1)
Quarter: 2013Q1

REPORT INFORMATION
  Report Type: Spontaneous
  Country: FR (occurrence: FR)
  Receive Date: 20130208
  Receipt Date: 20130208
  Transmission Date: 20140127
  Serious: Yes (Other)
  Sender: FDA-Public Use
  Company Number: FR-ELI_LILLY_AND_COMPANY-FR201301009434

PATIENT
  Age: 82 Year
  Sex: Female

DRUGS (4)
  1. FORSTEO [Suspect]
     Indication: OSTEOPOROSIS
     Dosage: 20 UG, QD
     Route: 058
     Dates: start: 20120926
  2. PREVISCAN [Concomitant]
  3. KENZEN [Concomitant]
  4. CARDENSIEL [Concomitant]

REACTIONS (1)
  - Bone density decreased [Not Recovered/Not Resolved]
